FAERS Safety Report 23539555 (Version 1)
Quarter: 2024Q1

REPORT INFORMATION
  Report Type: Spontaneous
  Country: US (occurrence: US)
  Receive Date: 20240219
  Receipt Date: 20240219
  Transmission Date: 20240409
  Serious: No
  Sender: FDA-Public Use
  Company Number: US-CTI BIOPHARMA-2024US04442

PATIENT

DRUGS (1)
  1. VONJO [Suspect]
     Active Substance: PACRITINIB
     Indication: Myelofibrosis
     Dosage: 200 MG, BID
     Route: 048
     Dates: start: 20220623

REACTIONS (11)
  - Somnolence [Unknown]
  - Decreased appetite [Unknown]
  - Fluid intake reduced [Unknown]
  - Flank pain [Unknown]
  - Abdominal distension [Unknown]
  - Asthenia [Unknown]
  - Abdominal pain upper [Unknown]
  - Product dose omission issue [Unknown]
  - Fatigue [Unknown]
  - Back pain [Unknown]
  - Cough [Unknown]
